FAERS Safety Report 7507035-0 (Version None)
Quarter: 2011Q2

REPORT INFORMATION
  Report Type: 
  Country: None (occurrence: None)
  Receive Date: 20110526
  Receipt Date: 20110523
  Transmission Date: 20111010
  Serious: Yes (Other)
  Sender: FDA-Public Use
  Company Number: US-B.I. PHARMACEUTICALS,INC./RIDGEFIELD-2011-BP-13665BP

PATIENT
  Sex: Female

DRUGS (2)
  1. CELECOXIB [Suspect]
  2. MELOXICAM [Suspect]

REACTIONS (2)
  - ARTHRITIS [None]
  - PAIN [None]
